FAERS Safety Report 24984841 (Version 2)
Quarter: 2025Q3

REPORT INFORMATION
  Report Type: Report from Study
  Country: US (occurrence: None)
  Receive Date: 20250219
  Receipt Date: 20250816
  Transmission Date: 20251020
  Serious: Yes (Hospitalization, Other)
  Sender: ALEXION PHARMACEUTICALS
  Company Number: US-AstraZeneca-2012SE93557

PATIENT
  Age: 48 Year
  Sex: Female
  Weight: 104.33 kg

DRUGS (10)
  1. SEROQUEL [Suspect]
     Active Substance: QUETIAPINE FUMARATE
     Indication: Bipolar disorder
     Dates: start: 2012, end: 20131201
  2. SEROQUEL [Suspect]
     Active Substance: QUETIAPINE FUMARATE
  3. NEXIUM [Suspect]
     Active Substance: ESOMEPRAZOLE MAGNESIUM
     Indication: Gastrooesophageal reflux disease
  4. LITHIUM [Concomitant]
     Active Substance: LITHIUM
     Indication: Bipolar disorder
  5. VALIUM [Concomitant]
     Active Substance: DIAZEPAM
     Indication: Anxiety
  6. OXYGEN [Concomitant]
     Active Substance: OXYGEN
     Indication: Chronic obstructive pulmonary disease
  7. METOPROLOL TARTRATE [Concomitant]
     Active Substance: METOPROLOL TARTRATE
     Indication: Hypertension
  8. SYNTHROID [Concomitant]
     Active Substance: LEVOTHYROXINE SODIUM
     Indication: Thyroid disorder
  9. NORCO [Concomitant]
     Active Substance: ACETAMINOPHEN\HYDROCODONE BITARTRATE
     Indication: Pain
  10. CALCIUM [Concomitant]
     Active Substance: CALCIUM

REACTIONS (14)
  - Tachycardia [Unknown]
  - Hepatic function abnormal [Unknown]
  - Chest pain [Unknown]
  - Tendon rupture [Unknown]
  - Fall [Unknown]
  - Wrist fracture [Unknown]
  - Vomiting [Unknown]
  - Drug withdrawal syndrome [Unknown]
  - Somnambulism [Unknown]
  - Agitation [Unknown]
  - Bone pain [Unknown]
  - Hypoacusis [Unknown]
  - Mania [Unknown]
  - Product dose omission issue [Unknown]

NARRATIVE: CASE EVENT DATE: 20130501
